FAERS Safety Report 17599527 (Version 2)
Quarter: 2021Q2

REPORT INFORMATION
  Report Type: Spontaneous
  Country: US (occurrence: US)
  Receive Date: 20200330
  Receipt Date: 20210409
  Transmission Date: 20210716
  Serious: No
  Sender: FDA-Public Use
  Company Number: US-JNJFOC-20200335296

PATIENT
  Age: 52 Year
  Sex: Female
  Weight: 68.1 kg

DRUGS (1)
  1. SPRAVATO [Suspect]
     Active Substance: ESKETAMINE
     Indication: DEPRESSION

REACTIONS (2)
  - Product dose omission issue [Unknown]
  - Dissociation [Recovered/Resolved]
